FAERS Safety Report 11008928 (Version 1)
Quarter: 2015Q2

REPORT INFORMATION
  Report Type: Spontaneous
  Country: PH (occurrence: PH)
  Receive Date: 20150410
  Receipt Date: 20150410
  Transmission Date: 20150821
  Serious: Yes (Other)
  Sender: FDA-Public Use
  Company Number: PH-009507513-1411PHL011902

PATIENT
  Age: 56 Year
  Sex: Female

DRUGS (1)
  1. PEGINTRON [Suspect]
     Active Substance: PEGINTERFERON ALFA-2B
     Dosage: 0.5 ML, 1 X / 10 DAYS
     Route: 058
     Dates: start: 20140916, end: 20150105

REACTIONS (4)
  - Haemoglobin decreased [Recovered/Resolved]
  - Drug dose omission [Unknown]
  - Leukopenia [Recovered/Resolved]
  - Neutrophil count abnormal [Recovered/Resolved]

NARRATIVE: CASE EVENT DATE: 2014
